FAERS Safety Report 13028648 (Version 1)
Quarter: 2016Q4

REPORT INFORMATION
  Report Type: Not Available
  Country: US (occurrence: US)
  Receive Date: 20161214
  Receipt Date: 20161214
  Transmission Date: 20170207
  Serious: Yes (Death)
  Sender: FDA-Public Use
  Company Number: US-IDTAUSTRALIA-2016-US-010181

PATIENT
  Age: 48 Year
  Sex: Male

DRUGS (6)
  1. DOXAZOSIN [Suspect]
     Active Substance: DOXAZOSIN\DOXAZOSIN MESYLATE
     Dosage: UNKNOWN
     Route: 048
  2. AMLODIPINE [Suspect]
     Active Substance: AMLODIPINE BESYLATE
     Dosage: UNKNOWN
     Route: 048
  3. LISINOPRIL. [Suspect]
     Active Substance: LISINOPRIL
     Dosage: UNKNOWN
     Route: 048
  4. CARVEDILOL. [Suspect]
     Active Substance: CARVEDILOL
     Dosage: UNKNOWN
     Route: 048
  5. HYDRALAZINE [Suspect]
     Active Substance: HYDRALAZINE HYDROCHLORIDE
     Dosage: UNKNOWN
     Route: 048
  6. HYDROCHLOROTHIAZIDE. [Suspect]
     Active Substance: HYDROCHLOROTHIAZIDE
     Dosage: UNKNOWN
     Route: 048

REACTIONS (9)
  - Acute kidney injury [Unknown]
  - Pulmonary oedema [Unknown]
  - Shock [Unknown]
  - Iatrogenic injury [Fatal]
  - Overdose [Fatal]
  - Supraventricular tachycardia [Unknown]
  - Shock haemorrhagic [Fatal]
  - Unresponsive to stimuli [Unknown]
  - Cardiomegaly [Unknown]
